FAERS Safety Report 5777095-6 (Version None)
Quarter: 2008Q2

REPORT INFORMATION
  Report Type: 
  Country: None (occurrence: None)
  Receive Date: 20080617
  Receipt Date: 20080617
  Transmission Date: 20081010
  Serious: Yes (Life-Threatening)
  Sender: FDA-Public Use
  Company Number: None

PATIENT
  Sex: Female
  Weight: 89.5 kg

DRUGS (11)
  1. DROTRECOGIN ALFA [Suspect]
     Indication: SEPSIS
     Dosage: IV
     Route: 042
     Dates: start: 20080311, end: 20080312
  2. HYDROCORTISONE [Concomitant]
  3. CEFEPIME [Concomitant]
  4. DILTIAZEM HCL [Concomitant]
  5. LOVENOX [Concomitant]
  6. METOPROLOL [Concomitant]
  7. METRONIDAZOLE HCL [Concomitant]
  8. PROTONIX [Concomitant]
  9. VANCOMYCIN [Concomitant]
  10. CASPOFUNGIN [Concomitant]
  11. TPN [Concomitant]

REACTIONS (5)
  - CLOSTRIDIUM DIFFICILE COLITIS [None]
  - COAGULOPATHY [None]
  - DIVERTICULAR PERFORATION [None]
  - HAEMORRHAGE [None]
  - SEPSIS [None]
